FAERS Safety Report 5155308-1 (Version None)
Quarter: 2006Q4

REPORT INFORMATION
  Report Type: 
  Country: None (occurrence: None)
  Receive Date: 20061121
  Receipt Date: 20061109
  Transmission Date: 20070319
  Serious: Yes (Hospitalization)
  Sender: FDA-Public Use
  Company Number: 2006PK02355

PATIENT
  Age: 61 Year
  Sex: Male
  Weight: 71 kg

DRUGS (10)
  1. BELOC ZOK [Suspect]
     Route: 048
  2. ALKERAN [Suspect]
     Indication: MULTIPLE MYELOMA
     Route: 042
     Dates: start: 20061018, end: 20061018
  3. PHYSIOTENS [Suspect]
     Route: 048
  4. ZOFRAN [Suspect]
     Indication: NAUSEA
     Route: 042
     Dates: start: 20061018, end: 20061018
  5. ZOFRAN [Suspect]
     Indication: VOMITING
     Route: 042
     Dates: start: 20061018, end: 20061018
  6. MAXIPIME [Suspect]
     Indication: PYREXIA
     Route: 042
     Dates: start: 20061018, end: 20061019
  7. PRADIF [Concomitant]
     Route: 048
  8. CALCIUM ACETATE [Concomitant]
     Route: 048
  9. PROSCAR [Concomitant]
     Route: 048
     Dates: end: 20061017
  10. RECORMON [Concomitant]
     Route: 058

REACTIONS (6)
  - ANAPHYLACTIC SHOCK [None]
  - HYPERSENSITIVITY [None]
  - HYPOTENSION [None]
  - PYREXIA [None]
  - RASH [None]
  - TYPE IV HYPERSENSITIVITY REACTION [None]
